FAERS Safety Report 5823213-0 (Version None)
Quarter: 2008Q3

REPORT INFORMATION
  Report Type: 
  Country: None (occurrence: None)
  Receive Date: 20080725
  Receipt Date: 20080722
  Transmission Date: 20090109
  Serious: Yes (Other)
  Sender: FDA-Public Use
  Company Number: CN-JNJFOC-20080705278

PATIENT
  Age: 9 Month
  Sex: Male
  Weight: 9.5 kg

DRUGS (4)
  1. CHILDREN'S MOTRIN [Suspect]
     Route: 048
  2. CHILDREN'S MOTRIN [Suspect]
     Indication: PYREXIA
     Route: 048
  3. PENICILLIN [Concomitant]
     Indication: ANTIBIOTIC THERAPY
     Route: 042
  4. CEPHALOSPORIN [Concomitant]
     Indication: ANTIBIOTIC THERAPY
     Route: 048

REACTIONS (2)
  - ALANINE AMINOTRANSFERASE INCREASED [None]
  - ASPARTATE AMINOTRANSFERASE INCREASED [None]
